FAERS Safety Report 10053454 (Version 1)
Quarter: 2014Q2

REPORT INFORMATION
  Report Type: Spontaneous
  Country: GB (occurrence: GB)
  Receive Date: 20140402
  Receipt Date: 20140402
  Transmission Date: 20141212
  Serious: Yes (Hospitalization)
  Sender: FDA-Public Use
  Company Number: PHFR2014GB002511

PATIENT
  Age: 24 Year
  Sex: Male

DRUGS (1)
  1. CLOZARIL [Suspect]
     Indication: SCHIZOPHRENIA
     Dates: start: 20120217

REACTIONS (4)
  - Emotional distress [Recovered/Resolved]
  - Paranoia [Recovered/Resolved]
  - Self injurious behaviour [Recovered/Resolved]
  - Neutrophil count increased [Unknown]
